FAERS Safety Report 23825179 (Version 1)
Quarter: 2024Q2

REPORT INFORMATION
  Report Type: Spontaneous
  Country: CN (occurrence: CN)
  Receive Date: 20240507
  Receipt Date: 20240507
  Transmission Date: 20240716
  Serious: Yes (Hospitalization)
  Sender: FDA-Public Use
  Company Number: CN-STERISCIENCE B.V.-2024-ST-000560

PATIENT
  Age: 15 Year
  Sex: Female

DRUGS (10)
  1. MEROPENEM [Suspect]
     Active Substance: MEROPENEM
     Indication: Bacterial infection
     Dosage: RECEIVED FOR 2 DAYS
     Route: 065
  2. PIPERACILLIN SODIUM\TAZOBACTAM SODIUM [Suspect]
     Active Substance: PIPERACILLIN SODIUM\TAZOBACTAM SODIUM
     Indication: Bacterial infection
     Dosage: RECEIVED FOR 5 DAYS
     Route: 065
  3. AZITHROMYCIN [Suspect]
     Active Substance: AZITHROMYCIN
     Indication: Bacterial infection
     Dosage: RECEIVED FOR 7 DAYS
     Route: 065
  4. CEFTRIAXONE [Suspect]
     Active Substance: CEFTRIAXONE\CEFTRIAXONE SODIUM
     Indication: Bacterial infection
     Dosage: RECEIVED FOR 7 DAYS
     Route: 065
  5. Sertraline-hydrochloride [Concomitant]
     Indication: Depressive symptom
     Dosage: UNK
     Route: 065
  6. Diclofenac-sodium [Concomitant]
     Indication: Pyrexia
     Dosage: RECEIVED FOR 7 DAYS
     Route: 065
  7. OSELTAMIVIR [Concomitant]
     Active Substance: OSELTAMIVIR
     Indication: Cytomegalovirus infection
     Dosage: RECEIVED FOR 5 DAYS
     Route: 065
  8. ANDROGRAPHIS PANICULATA [Concomitant]
     Indication: Cytomegalovirus infection
     Dosage: RECEIVED FOR 2 DAYS
     Route: 065
  9. DEXAMETHASONE SODIUM PHOSPHATE [Concomitant]
     Active Substance: DEXAMETHASONE PHOSPHATE\DEXAMETHASONE SODIUM PHOSPHATE
     Indication: Inflammation
     Dosage: RECEIVED FOR 5 DAYS
     Route: 065
  10. CEFUROXIME [Concomitant]
     Active Substance: CEFUROXIME
     Indication: Antibiotic prophylaxis
     Dosage: RECEIVED FOR 7 DAYS
     Route: 065

REACTIONS (1)
  - Drug ineffective [Unknown]
